FAERS Safety Report 13800867 (Version 1)
Quarter: 2017Q3

REPORT INFORMATION
  Report Type: Spontaneous
  Country: IT (occurrence: IT)
  Receive Date: 20170727
  Receipt Date: 20170727
  Transmission Date: 20171127
  Serious: Yes (Hospitalization)
  Sender: FDA-Public Use
  Company Number: IT-ASTRAZENECA-2017SE74301

PATIENT
  Age: 76 Year
  Sex: Male

DRUGS (29)
  1. CARDIOASPIRIN [Concomitant]
     Active Substance: ASPIRIN
     Indication: CARDIAC FAILURE CONGESTIVE
     Route: 048
  2. RAMIPRIL. [Concomitant]
     Active Substance: RAMIPRIL
     Indication: CARDIAC FAILURE CONGESTIVE
     Route: 048
  3. FUROSEMIDE. [Concomitant]
     Active Substance: FUROSEMIDE
     Indication: ACUTE MYOCARDIAL INFARCTION
     Dosage: 20.0MG ONCE/SINGLE ADMINISTRATION
     Route: 042
  4. ISOSORBIDE DINITRATE. [Concomitant]
     Active Substance: ISOSORBIDE DINITRATE
     Indication: ACUTE MYOCARDIAL INFARCTION
     Dosage: 0.08 MG/ML AT 40 ML/H CONTINUOUS INFUSION
     Route: 041
  5. ATORVASTATIN [Concomitant]
     Active Substance: ATORVASTATIN
     Indication: CARDIAC FAILURE CONGESTIVE
     Route: 048
  6. FUROSEMIDE. [Concomitant]
     Active Substance: FUROSEMIDE
     Indication: LEFT VENTRICULAR DYSFUNCTION
     Dosage: 20.0MG ONCE/SINGLE ADMINISTRATION
     Route: 042
  7. METFORMIN [Concomitant]
     Active Substance: METFORMIN HYDROCHLORIDE
     Route: 065
  8. VALSARTAN/HYDROCHLOROTHIAZIDE [Concomitant]
     Active Substance: HYDROCHLOROTHIAZIDE\VALSARTAN
     Dosage: 320/12.5 MG
     Route: 065
  9. CARDIOASPIRIN [Concomitant]
     Active Substance: ASPIRIN
     Indication: LEFT VENTRICULAR DYSFUNCTION
     Route: 048
  10. FUROSEMIDE. [Concomitant]
     Active Substance: FUROSEMIDE
     Indication: CARDIAC FAILURE CONGESTIVE
     Dosage: 10.0ML ONCE/SINGLE ADMINISTRATION
     Route: 041
  11. CARDIOASPIRIN [Concomitant]
     Active Substance: ASPIRIN
     Indication: ACUTE MYOCARDIAL INFARCTION
     Route: 048
  12. RAMIPRIL. [Concomitant]
     Active Substance: RAMIPRIL
     Indication: LEFT VENTRICULAR DYSFUNCTION
     Route: 048
  13. CANRENOIC ACID [Concomitant]
     Active Substance: CANRENOIC ACID
     Indication: LEFT VENTRICULAR DYSFUNCTION
     Route: 048
  14. ISOSORBIDE DINITRATE. [Concomitant]
     Active Substance: ISOSORBIDE DINITRATE
     Indication: LEFT VENTRICULAR DYSFUNCTION
     Dosage: 0.08 MG/ML AT 40 ML/H CONTINUOUS INFUSION
     Route: 041
  15. TICAGRELOR. [Suspect]
     Active Substance: TICAGRELOR
     Indication: CARDIAC FAILURE CONGESTIVE
     Route: 048
  16. OXYGEN. [Concomitant]
     Active Substance: OXYGEN
     Indication: CARDIAC FAILURE CONGESTIVE
     Route: 055
  17. OXYGEN. [Concomitant]
     Active Substance: OXYGEN
     Indication: ACUTE MYOCARDIAL INFARCTION
     Route: 055
  18. ATORVASTATIN [Concomitant]
     Active Substance: ATORVASTATIN
     Indication: LEFT VENTRICULAR DYSFUNCTION
     Route: 048
  19. RAMIPRIL. [Concomitant]
     Active Substance: RAMIPRIL
     Indication: ACUTE MYOCARDIAL INFARCTION
     Route: 048
  20. CANRENOIC ACID [Concomitant]
     Active Substance: CANRENOIC ACID
     Indication: CARDIAC FAILURE CONGESTIVE
     Route: 048
  21. FUROSEMIDE. [Concomitant]
     Active Substance: FUROSEMIDE
     Indication: CARDIAC FAILURE CONGESTIVE
     Dosage: 20.0MG ONCE/SINGLE ADMINISTRATION
     Route: 042
  22. ISOSORBIDE DINITRATE. [Concomitant]
     Active Substance: ISOSORBIDE DINITRATE
     Indication: CARDIAC FAILURE CONGESTIVE
     Dosage: 0.08 MG/ML AT 40 ML/H CONTINUOUS INFUSION
     Route: 041
  23. OXYGEN. [Concomitant]
     Active Substance: OXYGEN
     Indication: LEFT VENTRICULAR DYSFUNCTION
     Route: 055
  24. TICAGRELOR. [Suspect]
     Active Substance: TICAGRELOR
     Indication: ACUTE MYOCARDIAL INFARCTION
     Route: 048
  25. ATORVASTATIN [Concomitant]
     Active Substance: ATORVASTATIN
     Indication: ACUTE MYOCARDIAL INFARCTION
     Route: 048
  26. CANRENOIC ACID [Concomitant]
     Active Substance: CANRENOIC ACID
     Indication: ACUTE MYOCARDIAL INFARCTION
     Route: 048
  27. TICAGRELOR. [Suspect]
     Active Substance: TICAGRELOR
     Indication: LEFT VENTRICULAR DYSFUNCTION
     Route: 048
  28. FUROSEMIDE. [Concomitant]
     Active Substance: FUROSEMIDE
     Indication: LEFT VENTRICULAR DYSFUNCTION
     Dosage: 10.0ML ONCE/SINGLE ADMINISTRATION
     Route: 041
  29. FUROSEMIDE. [Concomitant]
     Active Substance: FUROSEMIDE
     Indication: ACUTE MYOCARDIAL INFARCTION
     Dosage: 10.0ML ONCE/SINGLE ADMINISTRATION
     Route: 041

REACTIONS (2)
  - Cheyne-Stokes respiration [Recovered/Resolved]
  - Sinus arrest [Recovered/Resolved]
